FAERS Safety Report 6117307-2 (Version None)
Quarter: 2009Q1

REPORT INFORMATION
  Report Type: 
  Country: None (occurrence: None)
  Receive Date: 20090314
  Receipt Date: 20090113
  Transmission Date: 20090719
  Serious: No
  Sender: FDA-Public Use
  Company Number: US-ABBOTT-09P-163-0497425-00

PATIENT
  Sex: Male
  Weight: 128.94 kg

DRUGS (3)
  1. HUMIRA [Suspect]
     Indication: RHEUMATOID ARTHRITIS
     Route: 058
     Dates: start: 20081001, end: 20090112
  2. HUMIRA [Suspect]
     Route: 058
     Dates: start: 20090112
  3. PREDNISONE [Concomitant]
     Indication: RHEUMATOID ARTHRITIS

REACTIONS (1)
  - ARTHRALGIA [None]
